FAERS Safety Report 4992156-7 (Version None)
Quarter: 2006Q2

REPORT INFORMATION
  Report Type: 
  Country: None (occurrence: None)
  Receive Date: 20060504
  Receipt Date: 20060426
  Transmission Date: 20061013
  Serious: Yes (Hospitalization)
  Sender: FDA-Public Use
  Company Number: FR-JNJFOC-20060204710

PATIENT
  Age: 25 Year
  Sex: Male
  Weight: 100 kg

DRUGS (4)
  1. RISPERDAL [Suspect]
     Indication: PERSONALITY DISORDER
     Route: 048
  2. AMITRIPTYLINE HCL [Concomitant]
  3. OXAZEPAM [Concomitant]
  4. AMISULPRIDE [Concomitant]

REACTIONS (2)
  - COLITIS [None]
  - GASTRITIS [None]
